FAERS Safety Report 7694262-5 (Version None)
Quarter: 2011Q3

REPORT INFORMATION
  Report Type: 
  Country: None (occurrence: None)
  Receive Date: 20110819
  Receipt Date: 20110810
  Transmission Date: 20111222
  Serious: Yes (Death)
  Sender: FDA-Public Use
  Company Number: JP-GLAXOSMITHKLINE-B0723654A

PATIENT
  Sex: Male
  Weight: 43 kg

DRUGS (3)
  1. CLEANAL [Concomitant]
     Indication: BRONCHITIS CHRONIC
     Dosage: 1200MG PER DAY
     Route: 048
     Dates: end: 20100305
  2. FLUTICASONE PROPIONATE/SALMETEROL [Suspect]
     Indication: BRONCHITIS CHRONIC
     Dosage: 500MCG PER DAY
     Route: 055
     Dates: start: 20090911, end: 20100305
  3. FLIVAS [Concomitant]
     Dosage: 75MG PER DAY
     Route: 048
     Dates: end: 20100305

REACTIONS (2)
  - ACUTE MYELOID LEUKAEMIA [None]
  - PNEUMONIA BACTERIAL [None]
